FAERS Safety Report 21628529 (Version 3)
Quarter: 2022Q4

REPORT INFORMATION
  Report Type: Report from Study
  Country: IL (occurrence: None)
  Receive Date: 20221122
  Receipt Date: 20221222
  Transmission Date: 20230113
  Serious: Yes (Hospitalization)
  Sender: FDA-Public Use
  Company Number: IL-Eisai Medical Research-EC-2022-128491

PATIENT
  Age: 66 Year
  Sex: Male
  Weight: 69 kg

DRUGS (11)
  1. LENVATINIB [Suspect]
     Active Substance: LENVATINIB
     Indication: Malignant melanoma
     Dosage: STARTING DOSE, 20 MG FLUCTUATED DOSAGE
     Route: 048
     Dates: start: 20211129, end: 20221103
  2. QUAVONLIMAB [Suspect]
     Active Substance: QUAVONLIMAB
     Indication: Malignant melanoma
     Dosage: QUAVONLIMAB (MK-1308) 25 MG (+) PEMBROLIZUMAB (MK-3475) 400 MG
     Route: 041
     Dates: start: 20211129, end: 20221031
  3. AMLODIPINE [Concomitant]
     Active Substance: AMLODIPINE BESYLATE
     Dates: start: 20211207
  4. VIAGRA [Concomitant]
     Active Substance: SILDENAFIL CITRATE
     Dates: start: 201611
  5. OMEPRAZOLE [Concomitant]
     Active Substance: OMEPRAZOLE
     Dates: start: 201712
  6. SIMVASTATIN [Concomitant]
     Active Substance: SIMVASTATIN
     Dates: start: 200112
  7. ACETAMINOPHEN [Concomitant]
     Active Substance: ACETAMINOPHEN
     Dates: start: 20220611
  8. PREDNISONE [Concomitant]
     Active Substance: PREDNISONE
     Dates: start: 20220808, end: 20221112
  9. PANTOPRAZOLE [Concomitant]
     Active Substance: PANTOPRAZOLE
     Dates: start: 20221113, end: 20221115
  10. SOLU-MEDROL [Concomitant]
     Active Substance: METHYLPREDNISOLONE SODIUM SUCCINATE
     Dates: start: 20221113, end: 20221117
  11. PEMBROLIZUMAB [Suspect]
     Active Substance: PEMBROLIZUMAB

REACTIONS (1)
  - Transient ischaemic attack [Recovered/Resolved]

NARRATIVE: CASE EVENT DATE: 20221115
